FAERS Safety Report 6391682-6 (Version None)
Quarter: 2009Q4

REPORT INFORMATION
  Report Type: 
  Country: None (occurrence: None)
  Receive Date: 20091007
  Receipt Date: 20091001
  Transmission Date: 20100525
  Serious: Yes (Hospitalization, Disabling)
  Sender: FDA-Public Use
  Company Number: US-KINGPHARMUSA00001-K200901218

PATIENT
  Age: 59 Year
  Sex: Male

DRUGS (4)
  1. ALTACE [Suspect]
     Dosage: ^500 MG,^ QD
     Route: 048
     Dates: start: 20051201
  2. INSULIN [Suspect]
     Indication: DIABETES MELLITUS
     Dosage: 40 IU, QD
     Route: 058
     Dates: start: 20050601
  3. TRIAMCINOLONE ACETONIDE [Suspect]
     Indication: DIABETIC RETINAL OEDEMA
     Dosage: 4 MG, SINGLE
     Route: 031
     Dates: start: 20060714, end: 20060714
  4. INVESTIGATIONAL DRUG BLINDED [Concomitant]
     Indication: DIABETIC RETINAL OEDEMA
     Dosage: UNK, EVERY 6 WEEKS
     Route: 031
     Dates: start: 20060711

REACTIONS (6)
  - BUNDLE BRANCH BLOCK RIGHT [None]
  - CATARACT [None]
  - POSTERIOR CAPSULE OPACIFICATION [None]
  - RETINAL DETACHMENT [None]
  - SCOTOMA [None]
  - VISUAL ACUITY REDUCED [None]
